FAERS Safety Report 10100007 (Version 1)
Quarter: 2014Q2

REPORT INFORMATION
  Report Type: Other
  Country: US (occurrence: US)
  Receive Date: 20140423
  Receipt Date: 20140423
  Transmission Date: 20141212
  Serious: Yes (Other)
  Sender: FDA-Public Use
  Company Number: US-SHIRE-US201401419

PATIENT
  Age: 48 Year
  Sex: Female

DRUGS (1)
  1. VPRIV [Suspect]
     Indication: GAUCHER^S DISEASE
     Dosage: 3600 IU (9 VIALS), OTHER (BI-MONTHLY)
     Route: 041
     Dates: start: 20110929

REACTIONS (3)
  - Device breakage [Not Recovered/Not Resolved]
  - Medical device complication [Recovered/Resolved]
  - Arthralgia [Not Recovered/Not Resolved]
